FAERS Safety Report 7088106-2 (Version None)
Quarter: 2010Q4

REPORT INFORMATION
  Report Type: 
  Country: None (occurrence: None)
  Receive Date: 20101108
  Receipt Date: 20101104
  Transmission Date: 20110411
  Serious: Yes (Death)
  Sender: FDA-Public Use
  Company Number: US-ASTRAZENECA-2010SE27471

PATIENT
  Age: 70 Year
  Sex: Male

DRUGS (7)
  1. ROSUVASTATIN [Suspect]
     Indication: HYPERLIPIDAEMIA
     Route: 048
  2. ATORVASTATIN [Suspect]
     Indication: HYPERLIPIDAEMIA
  3. CERIVASTATIN [Suspect]
     Indication: HYPERLIPIDAEMIA
  4. EZETIMIBE [Suspect]
     Indication: HYPERLIPIDAEMIA
  5. FLUVASTATIN [Suspect]
     Indication: HYPERLIPIDAEMIA
  6. PRAVASTATIN [Suspect]
     Indication: HYPERLIPIDAEMIA
  7. SIMVASTATIN [Suspect]
     Indication: HYPERLIPIDAEMIA

REACTIONS (1)
  - AMYOTROPHIC LATERAL SCLEROSIS [None]
